FAERS Safety Report 20447901 (Version 1)
Quarter: 2022Q1

REPORT INFORMATION
  Report Type: Spontaneous
  Country: US (occurrence: US)
  Receive Date: 20220209
  Receipt Date: 20220209
  Transmission Date: 20220423
  Serious: No
  Sender: FDA-Public Use
  Company Number: US-HETERO-HET2022US00312

PATIENT

DRUGS (1)
  1. RITONAVIR [Suspect]
     Active Substance: RITONAVIR
     Indication: COVID-19
     Dosage: AT EVENING
     Route: 065
     Dates: start: 20220119, end: 20220124

REACTIONS (11)
  - Constipation [Unknown]
  - Blood pressure abnormal [Unknown]
  - White blood cell count [Unknown]
  - Urine output decreased [Unknown]
  - Gastrointestinal pain [Unknown]
  - Decreased appetite [Recovering/Resolving]
  - Dysgeusia [Unknown]
  - Weight decreased [Unknown]
  - Nausea [Not Recovered/Not Resolved]
  - Diarrhoea [Unknown]
  - Dyschezia [Unknown]

NARRATIVE: CASE EVENT DATE: 20220101
